FAERS Safety Report 19956245 (Version 1)
Quarter: 2021Q4

REPORT INFORMATION
  Report Type: Spontaneous
  Country: DE (occurrence: DE)
  Receive Date: 20211014
  Receipt Date: 20211014
  Transmission Date: 20220303
  Serious: Yes (Other)
  Sender: FDA-Public Use
  Company Number: DE-UCBSA-2021030256

PATIENT
  Age: 10 Year
  Sex: Female

DRUGS (8)
  1. LEVETIRACETAM [Suspect]
     Active Substance: LEVETIRACETAM
     Indication: Juvenile absence epilepsy
     Dosage: 42 MILLIGRAM/KILOGRAM, QD (42MG/KG/DAY)
  2. LEVETIRACETAM [Suspect]
     Active Substance: LEVETIRACETAM
     Dosage: 34 MILLIGRAM/KILOGRAM, QD  (34MG/KG/DAY)
  3. LEVETIRACETAM [Suspect]
     Active Substance: LEVETIRACETAM
     Dosage: 39 MILLIGRAM/KILOGRAM, QD (39MG/KG/DAY)
  4. LEVETIRACETAM [Suspect]
     Active Substance: LEVETIRACETAM
     Dosage: 29 MILLIGRAM/KILOGRAM, QD (29MG/KG/DAY)
  5. LEVETIRACETAM [Suspect]
     Active Substance: LEVETIRACETAM
     Dosage: (START DATE:2020) (750 MILLIGRAM, 2X/DAY (BID))
  6. LEVETIRACETAM [Suspect]
     Active Substance: LEVETIRACETAM
     Dosage: (START: FEB-2021)1000MG MORNING AND 750MG EVENING, 2X/DAY (BID))
  7. ETHOSUXIMIDE [Suspect]
     Active Substance: ETHOSUXIMIDE
     Indication: Product used for unknown indication
     Dosage: UNK
  8. LAMOTRIGINE [Concomitant]
     Active Substance: LAMOTRIGINE
     Indication: Product used for unknown indication
     Dosage: 5 MILLIGRAM (5 MILLIGRAM, UNK)

REACTIONS (8)
  - Generalised tonic-clonic seizure [Unknown]
  - Petit mal epilepsy [Unknown]
  - Aggression [Unknown]
  - Mood swings [Unknown]
  - Fatigue [Unknown]
  - Drug ineffective [Unknown]
  - Therapeutic product ineffective [Unknown]
  - Off label use [Unknown]

NARRATIVE: CASE EVENT DATE: 20181001
